FAERS Safety Report 7215169-3 (Version None)
Quarter: 2011Q1

REPORT INFORMATION
  Report Type: 
  Country: None (occurrence: None)
  Receive Date: 20110107
  Receipt Date: 20101201
  Transmission Date: 20110831
  Serious: No
  Sender: FDA-Public Use
  Company Number: A0884243A

PATIENT
  Sex: Male

DRUGS (12)
  1. FLOMAX [Concomitant]
  2. TOPROL-XL [Concomitant]
  3. EXFORGE [Concomitant]
  4. LOVAZA [Suspect]
     Dosage: 2G TWICE PER DAY
     Route: 048
  5. BYETTA [Concomitant]
  6. LIPITOR [Concomitant]
  7. ASPIRIN [Concomitant]
  8. PROSCAR [Concomitant]
  9. BUSPAR [Concomitant]
  10. METFORMIN [Concomitant]
  11. DICYCLOMINE [Concomitant]
  12. PAXIL [Concomitant]

REACTIONS (3)
  - PRODUCT QUALITY ISSUE [None]
  - THERAPEUTIC RESPONSE UNEXPECTED [None]
  - ABDOMINAL DISCOMFORT [None]
